FAERS Safety Report 6035229-2 (Version None)
Quarter: 2009Q1

REPORT INFORMATION
  Report Type: 
  Country: None (occurrence: None)
  Receive Date: 20090109
  Receipt Date: 20081209
  Transmission Date: 20090719
  Serious: Yes (Life-Threatening)
  Sender: FDA-Public Use
  Company Number: 125647

PATIENT
  Age: 9 Year

DRUGS (3)
  1. PHENYTOIN [Suspect]
     Indication: STATUS EPILEPTICUS
     Dosage: 18 MG/KG, INTRAVENOUS
     Route: 042
     Dates: start: 20081117, end: 20081117
  2. CARBAMAZEPINE [Concomitant]
  3. VALPROATE SODIUM [Concomitant]

REACTIONS (1)
  - PURPLE GLOVE SYNDROME [None]
